FAERS Safety Report 9772636 (Version 1)
Quarter: 2013Q4

REPORT INFORMATION
  Report Type: Spontaneous
  Country: US (occurrence: US)
  Receive Date: 20131219
  Receipt Date: 20131219
  Transmission Date: 20140711
  Serious: No
  Sender: FDA-Public Use
  Company Number: US-TEVA-451188USA

PATIENT
  Sex: Male

DRUGS (1)
  1. FENTORA [Suspect]

REACTIONS (1)
  - Condition aggravated [Unknown]
